FAERS Safety Report 8400892 (Version 2)
Quarter: 2013Q1

REPORT INFORMATION
  Report Type: Spontaneous
  Country: US (occurrence: US)
  Receive Date: 20120210
  Receipt Date: 20130219
  Transmission Date: 20140127
  Serious: No
  Sender: FDA-Public Use
  Company Number: US-BRISTOL-MYERS SQUIBB COMPANY-16253023

PATIENT
  Age: 67 Year
  Sex: Female
  Weight: 65 kg

DRUGS (5)
  1. ORENCIA [Suspect]
     Indication: RHEUMATOID ARTHRITIS
     Dosage: LAST INF ON 6MAR12
     Route: 042
     Dates: start: 201111
  2. PREDNISONE [Concomitant]
  3. NAPROSYN [Concomitant]
  4. GABAPENTIN [Concomitant]
  5. PRILOSEC [Concomitant]

REACTIONS (2)
  - Vertigo positional [Not Recovered/Not Resolved]
  - Oral pain [Not Recovered/Not Resolved]
